FAERS Safety Report 4722849-8 (Version None)
Quarter: 2005Q3

REPORT INFORMATION
  Report Type: 
  Country: None (occurrence: None)
  Receive Date: 20050722
  Receipt Date: 20050701
  Transmission Date: 20060218
  Serious: Yes (Hospitalization)
  Sender: FDA-Public Use
  Company Number: GB-GLAXOSMITHKLINE-B0386554A

PATIENT
  Age: 73 Year
  Sex: Male
  Weight: 62 kg

DRUGS (3)
  1. REQUIP [Suspect]
     Dosage: 18MG PER DAY
  2. ENTACAPONE [Concomitant]
  3. SINEMET [Concomitant]

REACTIONS (5)
  - ABNORMAL BEHAVIOUR [None]
  - AMNESIA [None]
  - DELUSION [None]
  - DRUG LEVEL ABOVE THERAPEUTIC [None]
  - LIBIDO INCREASED [None]
